FAERS Safety Report 13682532 (Version 2)
Quarter: 2017Q2

REPORT INFORMATION
  Report Type: Spontaneous
  Country: US (occurrence: US)
  Receive Date: 20170623
  Receipt Date: 20170630
  Transmission Date: 20170830
  Serious: No
  Sender: FDA-Public Use
  Company Number: US-ASTRAZENECA-2017SE65068

PATIENT
  Sex: Female

DRUGS (1)
  1. BYDUREON [Suspect]
     Active Substance: EXENATIDE
     Dosage: ONCE A WEEK
     Route: 058
     Dates: start: 2017

REACTIONS (11)
  - Tenderness [Unknown]
  - Hypertension [Not Recovered/Not Resolved]
  - Product quality issue [Unknown]
  - Neuropathy peripheral [Unknown]
  - Finger deformity [Unknown]
  - Device difficult to use [Unknown]
  - Blood glucose increased [Unknown]
  - Vitamin D decreased [Not Recovered/Not Resolved]
  - Feeling abnormal [Not Recovered/Not Resolved]
  - Amnesia [Unknown]
  - Diarrhoea [Unknown]
